FAERS Safety Report 5166869-0 (Version None)
Quarter: 2006Q4

REPORT INFORMATION
  Report Type: 
  Country: None (occurrence: None)
  Receive Date: 20061207
  Receipt Date: 20061128
  Transmission Date: 20070319
  Serious: Yes (Hospitalization)
  Sender: FDA-Public Use
  Company Number: BR-ELI_LILLY_AND_COMPANY-BR200612000014

PATIENT
  Age: 25 Year
  Sex: Male

DRUGS (3)
  1. GEMZAR [Suspect]
     Indication: GERM CELL CANCER
     Dosage: UNK, OTHER
     Route: 042
     Dates: start: 20060929
  2. GEMZAR [Suspect]
     Dosage: UNK, OTHER
     Route: 042
     Dates: start: 20060929
  3. OXALIPLATIN [Concomitant]
     Dosage: UNK, UNKNOWN
     Route: 042

REACTIONS (2)
  - EPISTAXIS [None]
  - THROMBOCYTOPENIA [None]
